FAERS Safety Report 20152692 (Version 1)
Quarter: 2021Q4

REPORT INFORMATION
  Report Type: Spontaneous
  Country: US (occurrence: US)
  Receive Date: 20211206
  Receipt Date: 20211206
  Transmission Date: 20220303
  Serious: No
  Sender: FDA-Public Use
  Company Number: US-NOVAST LABORATORIES INC.-2021NOV000307

PATIENT

DRUGS (4)
  1. CARISOPRODOL [Suspect]
     Active Substance: CARISOPRODOL
     Indication: Intervertebral disc degeneration
     Dosage: UNK
     Route: 065
     Dates: start: 2021
  2. CARISOPRODOL [Suspect]
     Active Substance: CARISOPRODOL
     Indication: Rheumatoid arthritis
  3. CARISOPRODOL [Suspect]
     Active Substance: CARISOPRODOL
     Indication: Osteoarthritis
  4. CARISOPRODOL [Suspect]
     Active Substance: CARISOPRODOL
     Indication: Muscle spasms

REACTIONS (4)
  - Constipation [Unknown]
  - Abdominal pain upper [Unknown]
  - Headache [Unknown]
  - Drug ineffective [Unknown]

NARRATIVE: CASE EVENT DATE: 20210101
